FAERS Safety Report 23752592 (Version 1)
Quarter: 2024Q2

REPORT INFORMATION
  Report Type: Spontaneous
  Country: CA (occurrence: CA)
  Receive Date: 20240417
  Receipt Date: 20240417
  Transmission Date: 20240716
  Serious: Yes (Hospitalization, Other)
  Sender: FDA-Public Use
  Company Number: CA-OTSUKA-2024_010675

PATIENT
  Age: 3 Decade
  Sex: Male

DRUGS (3)
  1. ARIPIPRAZOLE [Suspect]
     Active Substance: ARIPIPRAZOLE
     Indication: Bipolar disorder
     Dosage: UNK
     Route: 048
  2. QUETIAPINE FUMARATE [Suspect]
     Active Substance: QUETIAPINE FUMARATE
     Indication: Bipolar disorder
     Dosage: 100 MG, QD
     Route: 048
  3. QUETIAPINE FUMARATE [Suspect]
     Active Substance: QUETIAPINE FUMARATE
     Dosage: 25 MG, QD
     Route: 048

REACTIONS (7)
  - Condition aggravated [Recovered/Resolved]
  - Substance use disorder [Recovered/Resolved]
  - Depressed mood [Recovered/Resolved]
  - Apathy [Recovered/Resolved]
  - Libido decreased [Recovered/Resolved]
  - Sedation [Recovered/Resolved]
  - Off label use [Recovered/Resolved]
